FAERS Safety Report 6180297-0 (Version None)
Quarter: 2009Q2

REPORT INFORMATION
  Report Type: 
  Country: None (occurrence: None)
  Receive Date: 20090504
  Receipt Date: 20090504
  Transmission Date: 20091009
  Serious: Yes (Hospitalization)
  Sender: FDA-Public Use
  Company Number: None

PATIENT
  Sex: Male
  Weight: 96.7 kg

DRUGS (6)
  1. PEG-L-ASPARAGINASE (PEGASPARGASE,ONCOSPAR) [Suspect]
     Dosage: 100 IU
     Dates: end: 20090428
  2. VINCRISTINE SULFATE [Suspect]
     Dosage: 2 MG
     Dates: end: 20090428
  3. CYCLOPHOSPHAMIDE [Suspect]
     Dosage: 2160 MG
     Dates: end: 20090410
  4. CYTARABINE [Suspect]
     Dosage: 1280 MG
     Dates: end: 20090420
  5. MERCAPTOPURINE [Suspect]
     Dosage: 750 MG
     Dates: end: 20090426
  6. METHOTREXATE [Suspect]
     Dosage: 45 MG
     Dates: end: 20090427

REACTIONS (3)
  - ANXIETY [None]
  - DRUG HYPERSENSITIVITY [None]
  - WRONG DRUG ADMINISTERED [None]
